FAERS Safety Report 19525830 (Version 2)
Quarter: 2022Q1

REPORT INFORMATION
  Report Type: Other
  Country: JP (occurrence: None)
  Receive Date: 20210713
  Receipt Date: 20220221
  Transmission Date: 20220423
  Serious: Yes (Other)
  Sender: FDA-Public Use
  Company Number: JP-ROCHE-2868587

PATIENT

DRUGS (1)
  1. RITUXIMAB [Suspect]
     Active Substance: RITUXIMAB
     Indication: Systemic scleroderma
     Dosage: THE 4-WEEK TREATMENT PERIOD (FOUR 375 MG/M2 DOSES AT 1-WEEK INTERVALS) AND SUBSEQUENT 20-WEEK FOLLOW
     Route: 041

REACTIONS (1)
  - Enterocolitis [Unknown]
